FAERS Safety Report 14202913 (Version 1)
Quarter: 2017Q4

REPORT INFORMATION
  Report Type: Spontaneous
  Country: US (occurrence: US)
  Receive Date: 20171119
  Receipt Date: 20171119
  Transmission Date: 20180321
  Serious: No
  Sender: FDA-Public Use
  Company Number: US-BAUSCH-BL-2016-032993

PATIENT
  Sex: Male

DRUGS (2)
  1. TROPICAMIDE OPHTHALMIC SOLUTION USP 0.5% [Suspect]
     Active Substance: TROPICAMIDE
     Indication: OPHTHALMOLOGICAL EXAMINATION
     Dosage: 1 STEADY STREAM
     Route: 047
     Dates: start: 20161222, end: 20161222
  2. PROPARACAINE HYDROCHLORIDE OPHTHALMIC SOLUTION USP 0.5% [Suspect]
     Active Substance: PROPARACAINE HYDROCHLORIDE
     Indication: OPHTHALMOLOGICAL EXAMINATION
     Dosage: 1 STEADY STREAM
     Route: 047
     Dates: start: 20161222, end: 20161222

REACTIONS (2)
  - Extra dose administered [Unknown]
  - Vision blurred [Not Recovered/Not Resolved]

NARRATIVE: CASE EVENT DATE: 20161222
